FAERS Safety Report 25064234 (Version 3)
Quarter: 2025Q1

REPORT INFORMATION
  Report Type: Spontaneous
  Country: CA (occurrence: CA)
  Receive Date: 20250311
  Receipt Date: 20250320
  Transmission Date: 20250409
  Serious: Yes (Other)
  Sender: PFIZER
  Company Number: CA-PFIZER INC-202500051753

PATIENT
  Age: 66 Year
  Sex: Male

DRUGS (8)
  1. RUXIENCE [Suspect]
     Active Substance: RITUXIMAB-PVVR
     Indication: Granulomatosis with polyangiitis
     Dosage: 1 DF, WEEKLY, 847.5 MG WEEKLY FOR 4 WEEKS
     Route: 042
     Dates: start: 20210715
  2. RUXIENCE [Suspect]
     Active Substance: RITUXIMAB-PVVR
     Dates: start: 20210804
  3. ATORVASTATIN [Concomitant]
     Active Substance: ATORVASTATIN
     Route: 065
  4. GLICLAZIDE [Concomitant]
     Active Substance: GLICLAZIDE
     Route: 065
  5. JANUVIA [Concomitant]
     Active Substance: SITAGLIPTIN PHOSPHATE
     Route: 065
  6. PREDNISONE [Concomitant]
     Active Substance: PREDNISONE
  7. RAMIPRIL [Concomitant]
     Active Substance: RAMIPRIL
     Route: 065
  8. XARELTO [Concomitant]
     Active Substance: RIVAROXABAN

REACTIONS (4)
  - Tooth extraction [Unknown]
  - Tooth disorder [Unknown]
  - Impaired healing [Unknown]
  - Off label use [Unknown]
